FAERS Safety Report 6767892-2 (Version None)
Quarter: 2010Q2

REPORT INFORMATION
  Report Type: 
  Country: None (occurrence: None)
  Receive Date: 20100614
  Receipt Date: 20100607
  Transmission Date: 20101027
  Serious: Yes (Other)
  Sender: FDA-Public Use
  Company Number: AU-SANOFI-AVENTIS-2010SA032620

PATIENT
  Age: 58 Year
  Sex: Female

DRUGS (4)
  1. ARAVA [Suspect]
     Indication: RHEUMATOID ARTHRITIS
     Route: 048
     Dates: start: 20091215, end: 20100517
  2. PLAQUENIL [Concomitant]
  3. PREDNISONE [Concomitant]
  4. STRONTIUM RANELATE [Concomitant]

REACTIONS (1)
  - BREAST CANCER [None]
